FAERS Safety Report 9821042 (Version 2)
Quarter: 2014Q2

REPORT INFORMATION
  Report Type: Report from Study
  Country: US (occurrence: US)
  Receive Date: 20140116
  Receipt Date: 20140414
  Transmission Date: 20141212
  Serious: Yes (Death)
  Sender: FDA-Public Use
  Company Number: US-BRISTOL-MYERS SQUIBB COMPANY-20032033

PATIENT
  Age: 0 Day
  Sex: Male
  Weight: 3.7 kg

DRUGS (5)
  1. BARACLUDE [Suspect]
     Route: 064
     Dates: start: 20130528, end: 20131027
  2. TRUVADA [Suspect]
     Route: 064
     Dates: start: 20130110, end: 20131027
  3. PREZISTA [Suspect]
     Dosage: 1200MG/D?COURSE 2-28MAY-27OCT13?11SEP12-
     Route: 064
     Dates: start: 20130110, end: 20131027
  4. RITONAVIR [Suspect]
     Dosage: 200MG/D?COURSE 2?28MAY-27OCT13
     Route: 064
     Dates: start: 20130110, end: 20131027
  5. LAMIVUDINE [Suspect]
     Route: 064
     Dates: start: 20131022, end: 20131027

REACTIONS (1)
  - Stillbirth [Fatal]
